FAERS Safety Report 5669645-5 (Version None)
Quarter: 2008Q1

REPORT INFORMATION
  Report Type: 
  Country: None (occurrence: None)
  Receive Date: 20080317
  Receipt Date: 20080304
  Transmission Date: 20080703
  Serious: Yes (Other)
  Sender: FDA-Public Use
  Company Number: US-BAYER-200810939BCC

PATIENT
  Age: 83 Year
  Sex: Male
  Weight: 75 kg

DRUGS (9)
  1. ALKA SELTZER [Suspect]
     Indication: ARTHRALGIA
     Dosage: AS USED: 650/2000/3832 MG
     Route: 048
     Dates: start: 20080201
  2. OMEPRAZOLE [Concomitant]
  3. IBUPROFEN [Concomitant]
  4. ZETIA [Concomitant]
  5. LIPITOR [Concomitant]
  6. PLAVIX [Concomitant]
  7. DYAZIDE [Concomitant]
  8. FLOMAX [Concomitant]
  9. OXAZEPAM [Concomitant]

REACTIONS (5)
  - CARDIAC FAILURE [None]
  - DYSPNOEA [None]
  - HEART RATE INCREASED [None]
  - OEDEMA PERIPHERAL [None]
  - WHEEZING [None]
